FAERS Safety Report 18468672 (Version 1)
Quarter: 2020Q4

REPORT INFORMATION
  Report Type: Report from Study
  Country: ZA (occurrence: ZA)
  Receive Date: 20201105
  Receipt Date: 20201105
  Transmission Date: 20210114
  Serious: Yes (Other)
  Sender: FDA-Public Use
  Company Number: ZA-VIIV HEALTHCARE LIMITED-ZA2020GSK216742

PATIENT
  Age: 41 Year
  Sex: Female

DRUGS (24)
  1. GLYCOTHYMOL [Concomitant]
     Dosage: 10 ML, QD
     Route: 048
     Dates: start: 20180228, end: 20180303
  2. DOXYCYCLINE. [Concomitant]
     Active Substance: DOXYCYCLINE
     Dosage: 100 MG, BID
     Route: 048
     Dates: start: 20180821
  3. EFAVIRENZ. [Suspect]
     Active Substance: EFAVIRENZ
     Indication: HIV INFECTION
     Dosage: UNK
  4. PARACETAMOL [Concomitant]
     Active Substance: ACETAMINOPHEN
     Dosage: 1 G, TID
     Route: 048
     Dates: start: 20180228, end: 20180303
  5. DOXYCYCLINE. [Concomitant]
     Active Substance: DOXYCYCLINE
     Dosage: 100 MG, QD
     Route: 048
     Dates: start: 20180117, end: 20180221
  6. PYRIDOXINE [Concomitant]
     Active Substance: PYRIDOXINE
     Dosage: 25 MG, QD
     Route: 048
     Dates: start: 20171204
  7. PARACETAMOL [Concomitant]
     Active Substance: ACETAMINOPHEN
     Dosage: 1 G, TID
     Route: 048
     Dates: start: 20180103, end: 20180110
  8. RANITIDINE. [Concomitant]
     Active Substance: RANITIDINE
     Dosage: 150 MG, BID
     Route: 048
     Dates: start: 20180103, end: 20180814
  9. BACTRIM [Concomitant]
     Active Substance: SULFAMETHOXAZOLE\TRIMETHOPRIM
     Dosage: UNK, QD
     Route: 048
     Dates: start: 20180103, end: 20180117
  10. VITAMIN B6 [Concomitant]
     Active Substance: PYRIDOXINE HYDROCHLORIDE
     Dosage: UNK
     Route: 048
     Dates: start: 20180228
  11. TRYPTANOL [Concomitant]
     Active Substance: AMITRIPTYLINE
     Dosage: 50 MG, QD
     Route: 048
     Dates: start: 20180117, end: 20180228
  12. GLYCOTHYMOL [Concomitant]
     Dosage: 10 ML, QD
     Route: 048
     Dates: start: 20180103, end: 20180106
  13. ISONIAZID. [Concomitant]
     Active Substance: ISONIAZID
     Indication: ANTIBIOTIC PROPHYLAXIS
     Dosage: 300 MG, QD
     Route: 048
     Dates: start: 20171204, end: 20180523
  14. LANSOLOC [Concomitant]
     Active Substance: LANSOPRAZOLE
     Dosage: 300 MG, QD
     Route: 048
     Dates: start: 20180103, end: 20180103
  15. TRYPTANOL [Concomitant]
     Active Substance: AMITRIPTYLINE
     Dosage: 12.5 MG
     Route: 048
     Dates: start: 20171204, end: 20180116
  16. SENOKOT [Concomitant]
     Active Substance: SENNOSIDES
     Dosage: UNK
     Route: 048
     Dates: start: 20180103, end: 20180814
  17. LACTULOSE. [Concomitant]
     Active Substance: LACTULOSE
     Dosage: 10 ML, QD
     Route: 048
     Dates: start: 20171204, end: 20171220
  18. ILIADIN [Concomitant]
     Dosage: 2 DROP TID
     Dates: start: 20180323, end: 20180328
  19. EMTRICITABINE + TENOFOVIR [Suspect]
     Active Substance: EMTRICITABINE\TENOFOVIR
     Indication: HIV INFECTION
     Dosage: UNK
     Dates: start: 20171204
  20. PANAMOR [Concomitant]
     Active Substance: DICLOFENAC
     Dosage: 75 MG, BID
     Dates: start: 20180323, end: 20180814
  21. AUGMENTIN [Concomitant]
     Active Substance: AMOXICILLIN\CLAVULANATE POTASSIUM
     Dosage: 1 G, BID
     Route: 048
     Dates: start: 20180228, end: 20180303
  22. DAPSONE. [Concomitant]
     Active Substance: DAPSONE
     Dosage: 100 MG, QD
     Route: 048
     Dates: start: 20180117
  23. DOLUTEGRAVIR [Suspect]
     Active Substance: DOLUTEGRAVIR
     Indication: HIV INFECTION
     Dosage: UNK
     Dates: start: 20171204
  24. TRYPTANOL [Concomitant]
     Active Substance: AMITRIPTYLINE
     Dosage: 25 MG
     Route: 048
     Dates: start: 20180323, end: 20180814

REACTIONS (2)
  - Abortion spontaneous [Unknown]
  - Exposure during pregnancy [Unknown]

NARRATIVE: CASE EVENT DATE: 20180822
